FAERS Safety Report 23697873 (Version 7)
Quarter: 2024Q3

REPORT INFORMATION
  Report Type: Report from Study
  Country: MX (occurrence: MX)
  Receive Date: 20240402
  Receipt Date: 20240812
  Transmission Date: 20241016
  Serious: Yes (Hospitalization, Other)
  Sender: NOVARTIS
  Company Number: MX-002147023-NVSC2024MX068925

PATIENT
  Age: 36 Year
  Sex: Female
  Weight: 70 kg

DRUGS (6)
  1. OFATUMUMAB [Suspect]
     Active Substance: OFATUMUMAB
     Indication: Multiple sclerosis
     Dosage: 20 MG, QMO
     Route: 058
     Dates: start: 20240324
  2. OFATUMUMAB [Suspect]
     Active Substance: OFATUMUMAB
     Dosage: 20 MG, QMO
     Route: 058
     Dates: start: 20240502
  3. OFATUMUMAB [Suspect]
     Active Substance: OFATUMUMAB
     Dosage: 20 MG, QMO
     Route: 058
     Dates: start: 20240729
  4. LEVOTHYROXINE SODIUM [Concomitant]
     Active Substance: LEVOTHYROXINE SODIUM
     Indication: Hypothyroidism
     Dosage: 75 UG, QD
     Route: 065
  5. LEVOTHYROXINE SODIUM [Concomitant]
     Active Substance: LEVOTHYROXINE SODIUM
     Dosage: 75 UG, ONE DAY
     Route: 048
  6. LEVOTHYROXINE SODIUM [Concomitant]
     Active Substance: LEVOTHYROXINE SODIUM
     Dosage: 88 UG (NEXT DAY)
     Route: 065
     Dates: start: 20240329

REACTIONS (33)
  - Malaise [Unknown]
  - Respiratory disorder [Recovered/Resolved]
  - Dysarthria [Recovering/Resolving]
  - Dyspnoea [Unknown]
  - Vomiting [Recovered/Resolved]
  - Dizziness [Recovered/Resolved]
  - Bronchospasm [Recovered/Resolved]
  - Headache [Recovered/Resolved]
  - Heart rate abnormal [Recovered/Resolved]
  - Diaphragmatic disorder [Recovering/Resolving]
  - Nausea [Recovered/Resolved]
  - Respiratory failure [Unknown]
  - Arrhythmia [Unknown]
  - Syncope [Unknown]
  - Syncope [Recovered/Resolved]
  - Head injury [Unknown]
  - Influenza [Recovered/Resolved]
  - Pain [Recovered/Resolved]
  - Productive cough [Unknown]
  - Fall [Unknown]
  - Abdominal pain upper [Unknown]
  - Rhinorrhoea [Recovered/Resolved]
  - Back pain [Unknown]
  - Off label use [Unknown]
  - Influenza [Recovered/Resolved]
  - Oropharyngeal pain [Recovered/Resolved]
  - Discomfort [Recovered/Resolved]
  - Headache [Recovered/Resolved]
  - Headache [Unknown]
  - Dizziness [Unknown]
  - Nausea [Unknown]
  - Vomiting [Unknown]
  - Oropharyngeal pain [Recovered/Resolved]

NARRATIVE: CASE EVENT DATE: 20240301
